FAERS Safety Report 13300005 (Version 1)
Quarter: 2017Q1

REPORT INFORMATION
  Report Type: Spontaneous
  Country: US (occurrence: US)
  Receive Date: 20170306
  Receipt Date: 20170306
  Transmission Date: 20170428
  Serious: Yes (Death)
  Sender: FDA-Public Use
  Company Number: US-VIFOR (INTERNATIONAL) INC.-VIT-2017-02303

PATIENT
  Age: 62 Year
  Sex: Male

DRUGS (9)
  1. RENVELA [Concomitant]
     Active Substance: SEVELAMER CARBONATE
  2. ULORIC [Concomitant]
     Active Substance: FEBUXOSTAT
  3. COLCHICINE. [Concomitant]
     Active Substance: COLCHICINE
  4. BIOTIN [Concomitant]
     Active Substance: BIOTIN
  5. VELTASSA [Suspect]
     Active Substance: PATIROMER
     Indication: HYPERKALAEMIA
     Dosage: 8.4 GRAM PACKET IN 3 OUNCES OF WATER
     Route: 048
     Dates: start: 201610, end: 20170114
  6. PHOSLO [Concomitant]
     Active Substance: CALCIUM ACETATE
  7. RENA-VITE [Concomitant]
     Active Substance: ASCORBIC ACID\BIOTIN\CALCIUM PANTOTHENATE\CYANOCOBALAMIN\FOLIC ACID\NIACINAMIDE\PYRIDOXINE HYDROCHLORIDE\RIBOFLAVIN\THIAMINE MONONITRATE
  8. LEVEMIR [Concomitant]
     Active Substance: INSULIN DETEMIR
  9. SENSIPAR [Concomitant]
     Active Substance: CINACALCET HYDROCHLORIDE

REACTIONS (1)
  - Myocardial infarction [Fatal]

NARRATIVE: CASE EVENT DATE: 20170114
